FAERS Safety Report 6256441-3 (Version None)
Quarter: 2009Q3

REPORT INFORMATION
  Report Type: 
  Country: None (occurrence: None)
  Receive Date: 20090706
  Receipt Date: 20090626
  Transmission Date: 20100115
  Serious: Yes (Other)
  Sender: FDA-Public Use
  Company Number: JP-JNJFOC-20090302753

PATIENT
  Sex: Female
  Weight: 38 kg

DRUGS (2)
  1. ORTHO-NOVUM 1/35-21 [Suspect]
     Indication: DYSMENORRHOEA
     Route: 048
  2. FERROUS CITRATE [Concomitant]
     Route: 048

REACTIONS (4)
  - ABDOMINAL DISTENSION [None]
  - OFF LABEL USE [None]
  - SURGERY [None]
  - UTERINE LEIOMYOMA [None]
